FAERS Safety Report 23058582 (Version 2)
Quarter: 2023Q4

REPORT INFORMATION
  Report Type: Spontaneous
  Country: US (occurrence: US)
  Receive Date: 20231012
  Receipt Date: 20231121
  Transmission Date: 20240110
  Serious: Yes (Other)
  Sender: FDA-Public Use
  Company Number: US-ABBVIE-5447047

PATIENT
  Age: 86 Year
  Sex: Female

DRUGS (1)
  1. IMBRUVICA [Suspect]
     Active Substance: IBRUTINIB
     Indication: Product used for unknown indication
     Dosage: FORM STRENGTH 420 MILLIGRAM, TAKE 1?TABLET BY MOUTH ONCE DAILY
     Route: 048
     Dates: start: 20221118

REACTIONS (5)
  - Skin mass [Unknown]
  - Muscle spasms [Unknown]
  - Oral surgery [Unknown]
  - Post procedural haemorrhage [Recovered/Resolved]
  - Localised infection [Unknown]

NARRATIVE: CASE EVENT DATE: 20230901
